FAERS Safety Report 10153557 (Version 3)
Quarter: 2014Q2

REPORT INFORMATION
  Report Type: Report from Study
  Country: DE (occurrence: DE)
  Receive Date: 20140505
  Receipt Date: 20140609
  Transmission Date: 20141212
  Serious: Yes (Hospitalization)
  Sender: FDA-Public Use
  Company Number: PHHY2014DE053300

PATIENT
  Age: 54 Year
  Sex: Female
  Weight: 58 kg

DRUGS (5)
  1. AMN107 [Suspect]
     Indication: CHRONIC MYELOID LEUKAEMIA
     Dosage: 600 MG, PER DAY
     Route: 048
     Dates: start: 20121026, end: 20130528
  2. AMN107 [Suspect]
     Dosage: 300 MG, PER DAY
     Route: 048
     Dates: start: 20130529
  3. ASS [Concomitant]
     Indication: CORONARY ARTERY DISEASE
     Dosage: 100 U, PER DAY
     Route: 048
     Dates: start: 20131209
  4. BISOPROLOL [Concomitant]
     Indication: CORONARY ARTERY DISEASE
     Dosage: 9 U, PER DAY
     Route: 048
     Dates: start: 20131209
  5. ATORVASTATIN [Concomitant]
     Indication: CORONARY ARTERY DISEASE
     Dosage: 10 U, PER DAY
     Route: 048
     Dates: start: 20131209

REACTIONS (4)
  - Acute myocardial infarction [Recovered/Resolved]
  - Chest discomfort [Recovered/Resolved]
  - Dyspnoea [Recovered/Resolved]
  - Liver function test abnormal [Unknown]
